FAERS Safety Report 8281440-X (Version None)
Quarter: 2012Q2

REPORT INFORMATION
  Report Type: 
  Country: None (occurrence: None)
  Receive Date: 20120413
  Receipt Date: 20120404
  Transmission Date: 20120825
  Serious: Yes (Hospitalization)
  Sender: FDA-Public Use
  Company Number: US-ABBOTT-12P-163-0922456-00

PATIENT
  Sex: Female
  Weight: 75.818 kg

DRUGS (7)
  1. GABAPENTIN [Concomitant]
     Indication: SPINAL COLUMN STENOSIS
  2. CLONIDINE [Concomitant]
     Indication: ANXIETY
  3. NATURAL PAIN KILLERS [Concomitant]
     Indication: PAIN
  4. HYDROCHLOROTHIAZIDE [Concomitant]
     Indication: HYPERTENSION
  5. OXCARBAZEPINE [Concomitant]
     Indication: DEPRESSION
  6. HUMIRA [Suspect]
     Indication: COLITIS ULCERATIVE
     Dates: start: 20120201
  7. TRAZODONE HCL [Concomitant]
     Indication: INSOMNIA

REACTIONS (5)
  - OEDEMA PERIPHERAL [None]
  - OFF LABEL USE [None]
  - LOCALISED INFECTION [None]
  - ERYTHEMA [None]
  - ANIMAL SCRATCH [None]
